FAERS Safety Report 11052914 (Version 1)
Quarter: 2015Q2

REPORT INFORMATION
  Report Type: Spontaneous
  Country: JP (occurrence: None)
  Receive Date: 20150417
  Receipt Date: 20150417
  Transmission Date: 20150821
  Serious: No
  Sender: FDA-Public Use
  Company Number: 2015BCR00115

PATIENT
  Age: 17 Year
  Sex: Female

DRUGS (5)
  1. RAPIACTA [Suspect]
     Active Substance: PERAMIVIR
     Indication: INFLUENZA
     Dates: start: 20141226, end: 20141226
  2. RAPIACTA [Suspect]
     Active Substance: PERAMIVIR
  3. BAKTAR (SULFAMETHOXAZOLE/TRIMETHOPRIM) [Suspect]
     Active Substance: SULFAMETHOXAZOLE\TRIMETHOPRIM
     Indication: PNEUMOCYSTIS JIROVECII PNEUMONIA
     Dosage: 2 DOSAGE UNITS, 1//DAY, ORAL
     Route: 048
     Dates: start: 20141206, end: 20141206
  4. PREDONINE (PREDNISOLONE) [Concomitant]
  5. CELLCEPT [Concomitant]
     Active Substance: MYCOPHENOLATE MOFETIL\MYCOPHENOLATE MOFETIL HYDROCHLORIDE

REACTIONS (15)
  - Anaphylactic reaction [None]
  - Nausea [None]
  - Heart rate increased [None]
  - Appendicitis [None]
  - Blood pressure increased [None]
  - Cyanosis [None]
  - Acute abdomen [None]
  - Pyrexia [None]
  - Hypoaesthesia [None]
  - Prerenal failure [None]
  - Chills [None]
  - Malaise [None]
  - Vomiting [None]
  - Concomitant disease progression [None]
  - Diarrhoea [None]

NARRATIVE: CASE EVENT DATE: 20141219
